FAERS Safety Report 14249278 (Version 2)
Quarter: 2017Q4

REPORT INFORMATION
  Report Type: Spontaneous
  Country: FR (occurrence: FR)
  Receive Date: 20171204
  Receipt Date: 20171207
  Transmission Date: 20180321
  Serious: Yes (Other)
  Sender: FDA-Public Use
  Company Number: FR-GILEAD-2017-0302159

PATIENT
  Age: 55 Year
  Sex: Female
  Weight: 86 kg

DRUGS (6)
  1. LEVOTHYROX [Concomitant]
     Active Substance: LEVOTHYROXINE
     Indication: HYPOTHYROIDISM
     Dosage: 100 MG, UNK
     Route: 048
     Dates: start: 2012
  2. STRIBILD [Suspect]
     Active Substance: COBICISTAT\ELVITEGRAVIR\EMTRICITABINE\TENOFOVIR DISOPROXIL FUMARATE
     Indication: HIV INFECTION
     Dosage: 1 DF, QD
     Route: 048
     Dates: start: 201512, end: 20170630
  3. AMOXICILLIN. [Concomitant]
     Active Substance: AMOXICILLIN
  4. CLARITHROMYCINE [Concomitant]
     Active Substance: CLARITHROMYCIN
  5. PYLERA [Concomitant]
     Active Substance: BISMUTH SUBCITRATE POTASSIUM\METRONIDAZOLE\TETRACYCLINE HYDROCHLORIDE
  6. METRONIDAZOLE. [Concomitant]
     Active Substance: METRONIDAZOLE

REACTIONS (4)
  - Virologic failure [Recovered/Resolved]
  - Drug resistance [Unknown]
  - Off label use [Unknown]
  - Gene mutation identification test positive [Unknown]

NARRATIVE: CASE EVENT DATE: 2017
